FAERS Safety Report 9714429 (Version 1)
Quarter: 2013Q4

REPORT INFORMATION
  Report Type: Spontaneous
  Country: US (occurrence: US)
  Receive Date: 20131126
  Receipt Date: 20131126
  Transmission Date: 20140711
  Serious: No
  Sender: FDA-Public Use
  Company Number: US-BIOGENIDEC-2013BI076534

PATIENT
  Age: 59 Year
  Sex: Male

DRUGS (16)
  1. TECFIDERA [Suspect]
     Indication: MULTIPLE SCLEROSIS
     Route: 048
     Dates: start: 201306
  2. TECFIDERA [Suspect]
     Indication: MULTIPLE SCLEROSIS
     Route: 048
     Dates: start: 20130613
  3. FENTANYL [Concomitant]
  4. METFORMIN HCL [Concomitant]
  5. ONDASETRON HCL [Concomitant]
  6. VALIUM [Concomitant]
  7. LISINOPRIL HCTZ [Concomitant]
  8. SERTRALINE HCL [Concomitant]
  9. LEVEMIR FLEXPEN [Concomitant]
  10. BACLOFEN [Concomitant]
  11. RANITIDINE [Concomitant]
  12. MECLIZINE [Concomitant]
  13. AMANTADINE [Concomitant]
  14. ZANAFLEX [Concomitant]
  15. OPANA ER [Concomitant]
  16. CVS VIT D [Concomitant]

REACTIONS (2)
  - Flushing [Recovered/Resolved]
  - Rash pruritic [Recovered/Resolved]
